FAERS Safety Report 10149183 (Version 1)
Quarter: 2014Q2

REPORT INFORMATION
  Report Type: Spontaneous
  Country: FR (occurrence: FR)
  Receive Date: 20140502
  Receipt Date: 20140502
  Transmission Date: 20141212
  Serious: Yes (Life-Threatening, Hospitalization, Other)
  Sender: FDA-Public Use
  Company Number: FR-ELI_LILLY_AND_COMPANY-FR201404008927

PATIENT
  Age: 34 Year
  Sex: Female
  Weight: 69 kg

DRUGS (4)
  1. CYMBALTA [Suspect]
     Indication: INTENTIONAL OVERDOSE
     Dosage: 1 DF, SINGLE
     Route: 048
     Dates: start: 20121028, end: 20121028
  2. VALIUM                             /00017001/ [Suspect]
     Indication: INTENTIONAL OVERDOSE
     Dosage: 1 DF, SINGLE
     Route: 048
     Dates: start: 20121028, end: 20121028
  3. TERCIAN                            /00759301/ [Suspect]
     Indication: INTENTIONAL OVERDOSE
     Dosage: 1 DF, SINGLE
     Dates: start: 20121028, end: 20121028
  4. NOCTAMIDE [Suspect]
     Indication: INTENTIONAL OVERDOSE
     Dosage: 1 DF, SINGLE
     Dates: start: 20121028, end: 20121028

REACTIONS (4)
  - Coma [Recovered/Resolved]
  - Blood creatine phosphokinase increased [Recovered/Resolved]
  - Hypothermia [Recovered/Resolved]
  - Intentional overdose [Recovered/Resolved]
